FAERS Safety Report 6871230-4 (Version None)
Quarter: 2010Q3

REPORT INFORMATION
  Report Type: 
  Country: None (occurrence: None)
  Receive Date: 20100723
  Receipt Date: 20100712
  Transmission Date: 20110219
  Serious: Yes (Disabling, Other)
  Sender: FDA-Public Use
  Company Number: US-PFIZER INC-2010054946

PATIENT
  Sex: Male

DRUGS (2)
  1. CHANTIX [Suspect]
     Indication: SMOKING CESSATION THERAPY
     Dosage: 1MG FOR AT LEAST 56 DAYS UNK
     Dates: start: 20080530, end: 20080901
  2. METRONIDAZOLE [Concomitant]
     Indication: ANAL FISTULA
     Dosage: UNK
     Dates: start: 20020101, end: 20100101

REACTIONS (3)
  - AGGRESSION [None]
  - DEPRESSION [None]
  - SUICIDAL IDEATION [None]
